FAERS Safety Report 9424370 (Version 3)
Quarter: 2013Q4

REPORT INFORMATION
  Report Type: Spontaneous
  Country: US (occurrence: None)
  Receive Date: 20130725
  Receipt Date: 20131016
  Transmission Date: 20140711
  Serious: Yes (Death)
  Sender: FDA-Public Use
  Company Number: 2013-310

PATIENT
  Age: 25 Year
  Sex: Male

DRUGS (24)
  1. FAZACLO [Suspect]
     Indication: SCHIZOAFFECTIVE DISORDER
     Dosage: 25-300 MG, QD, ORAL
     Route: 048
     Dates: start: 20110606
  2. BENZTROPINE MESYLATE [Concomitant]
  3. PANTOPRAZOLE (PANTOPRAZOLE SODIUM SESQUIHYDRATE) [Concomitant]
  4. ASACOL (MESALAZINE) MODIFIED-RELEASE TABLET, 400 MG [Concomitant]
  5. ATENOLOL (ATENOLOL) [Concomitant]
  6. VENTOLIN (SALBUTAMOL SULFATE) [Concomitant]
  7. FLOVENT (FLUTICASONE PROPIONATE) [Concomitant]
  8. RISPERIDONE (RISPERIDONE) [Concomitant]
  9. MONTELUKAST [Concomitant]
  10. DIVALPROEX SODIUM (VALPROATE SEMISODIUM) [Concomitant]
  11. BALSALAZIDE DISODIUM (BALSALAZIDE SODIUM) [Concomitant]
  12. GLIMEPIRIDE (GLIMEPIRIDE) [Concomitant]
  13. OXCARBAZEPINE (OXCARBAZEPINE) [Concomitant]
  14. ATORVASTAN (ATORVASTATIN CALCIUM) [Concomitant]
  15. METFORMIN HCI (METFORMIN HYDROCHLORIDE) [Concomitant]
  16. JANUVIA (SITAGLIPTIN PHOSPHATE) [Concomitant]
  17. KETOCONAZOLE (KETOCONAZOLE) [Concomitant]
  18. HYOSCYAMINE SULFATE (HYOSCYAMINE SULFATE) [Concomitant]
  19. LIALDA (MESALAZINIE) [Concomitant]
  20. ALBUTEROL (SALBUTAMOL SULFATE) [Concomitant]
  21. ADVAIR (FLUTICASONE PROPIONATE, SALMETEROL XINAFOATE) [Concomitant]
  22. FLUTICASONE (FLUTICASONE PROPIONATE) [Concomitant]
  23. AMITRIPTYLINE HCL (AMITRIPTYLINE HYDROCHLORIDE) [Concomitant]
  24. HALOPERIDOL (HALOPERIDOL LACTATE) [Concomitant]

REACTIONS (1)
  - Death [None]
